FAERS Safety Report 23716783 (Version 4)
Quarter: 2024Q2

REPORT INFORMATION
  Report Type: Spontaneous
  Country: US (occurrence: US)
  Receive Date: 20240408
  Receipt Date: 20240523
  Transmission Date: 20240716
  Serious: No
  Sender: FDA-Public Use
  Company Number: US-002147023-NVSC2024US073317

PATIENT

DRUGS (1)
  1. COSENTYX [Suspect]
     Active Substance: SECUKINUMAB
     Indication: Product used for unknown indication
     Dosage: UNK
     Route: 065

REACTIONS (8)
  - Seborrhoeic dermatitis [Unknown]
  - Fungal infection [Unknown]
  - Nasal congestion [Unknown]
  - Hypoaesthesia [Unknown]
  - Insomnia [Unknown]
  - Fatigue [Unknown]
  - Groin pain [Unknown]
  - Tendon disorder [Unknown]
